FAERS Safety Report 8371090-9 (Version None)
Quarter: 2012Q2

REPORT INFORMATION
  Report Type: 
  Country: None (occurrence: None)
  Receive Date: 20120518
  Receipt Date: 20111220
  Transmission Date: 20120825
  Serious: Yes (Hospitalization)
  Sender: FDA-Public Use
  Company Number: US-BRISTOL-MYERS SQUIBB COMPANY-16305971

PATIENT

DRUGS (1)
  1. BARACLUDE [Suspect]
     Dosage: ASSUMES THAT SPLITTING THE 0.5 MG TABLETS,TABLETS CRUSHED

REACTIONS (1)
  - ADVERSE EVENT [None]
